FAERS Safety Report 7551974-1 (Version None)
Quarter: 2011Q2

REPORT INFORMATION
  Report Type: 
  Country: None (occurrence: None)
  Receive Date: 20110616
  Receipt Date: 20110601
  Transmission Date: 20111010
  Serious: Yes (Hospitalization)
  Sender: FDA-Public Use
  Company Number: PL-BAYER-2011-048108

PATIENT
  Sex: Female
  Weight: 67 kg

DRUGS (12)
  1. FLUCINAR [Concomitant]
     Indication: PALMAR-PLANTAR ERYTHRODYSAESTHESIA SYNDROME
     Dosage: UNK
     Dates: start: 20100106
  2. LATICORT [Concomitant]
     Indication: PALMAR-PLANTAR ERYTHRODYSAESTHESIA SYNDROME
     Dosage: UNK
     Dates: start: 20100106
  3. AMLOZEK [Concomitant]
     Indication: HYPERTENSION
     Dosage: UNK
     Dates: start: 20050803
  4. BLINDED SORAFENIB (RAF KINASE INHIBITOR) [Suspect]
     Indication: METASTATIC RENAL CELL CARCINOMA
     Dosage: 400 MG, BID
     Route: 048
     Dates: start: 20091224, end: 20110417
  5. HYDROCORTISONE [Concomitant]
     Indication: ADRENAL INSUFFICIENCY
     Dosage: UNK
     Dates: start: 20050729
  6. UREA [Concomitant]
     Indication: PALMAR-PLANTAR ERYTHRODYSAESTHESIA SYNDROME
     Dosage: UNK
     Dates: start: 20100106
  7. ESSENTIALE [VITAMINS NOS] [Concomitant]
     Indication: PROPHYLAXIS
  8. FUROSEMIDE [Concomitant]
     Indication: RENAL FAILURE
     Dosage: UNK
     Dates: start: 20050614
  9. MILURIT [Concomitant]
     Indication: RENAL FAILURE
     Dosage: UNK
     Dates: start: 20050803
  10. CLEMASTINE FUMARATE [Concomitant]
     Indication: PALMAR-PLANTAR ERYTHRODYSAESTHESIA SYNDROME
     Dosage: UNK
     Dates: start: 20100303
  11. BISOCARD [Concomitant]
     Indication: HYPERTENSION
     Dosage: UNK
     Dates: start: 19980101
  12. TARDYFERON-FOL [Concomitant]
     Indication: ANAEMIA
     Dosage: UNK
     Dates: start: 20090101

REACTIONS (1)
  - GENERAL PHYSICAL HEALTH DETERIORATION [None]
